FAERS Safety Report 6113444-7 (Version None)
Quarter: 2009Q1

REPORT INFORMATION
  Report Type: 
  Country: None (occurrence: None)
  Receive Date: 20090312
  Receipt Date: 20090304
  Transmission Date: 20090719
  Serious: Yes (Hospitalization)
  Sender: FDA-Public Use
  Company Number: BR-AVENTIS-200912234GDDC

PATIENT
  Age: 79 Year
  Sex: Male

DRUGS (3)
  1. LANTUS [Suspect]
     Route: 058
     Dates: start: 20050101, end: 20090301
  2. OPTIPEN (INSULIN PUMP) [Suspect]
     Dates: start: 20050101, end: 20090301
  3. OPTIPEN (INSULIN PUMP) [Suspect]
     Dates: start: 20090301

REACTIONS (1)
  - URINARY TRACT INFECTION [None]
